FAERS Safety Report 6631416-0 (Version None)
Quarter: 2010Q1

REPORT INFORMATION
  Report Type: 
  Country: None (occurrence: None)
  Receive Date: 20100312
  Receipt Date: 20100305
  Transmission Date: 20100710
  Serious: Yes (Hospitalization)
  Sender: FDA-Public Use
  Company Number: US-BAYER-200923334NA

PATIENT
  Age: 27 Year
  Sex: Female
  Weight: 73 kg

DRUGS (9)
  1. MIRENA [Suspect]
     Indication: DRUG USE FOR UNKNOWN INDICATION
     Dosage: FREQUENCY
     Route: 015
     Dates: start: 20090216, end: 20090216
  2. CELEXA [Concomitant]
     Route: 065
     Dates: start: 20100213
  3. ADIPEX [Concomitant]
     Dosage: BID
     Route: 065
     Dates: start: 20100213
  4. NUBAIN [Concomitant]
     Route: 042
     Dates: start: 20090216
  5. FENTANYL [Concomitant]
     Indication: PAIN
     Dosage: EVERY 10 MIN
     Route: 042
     Dates: start: 20100216
  6. DEMEROL [Concomitant]
     Indication: CHILLS
     Route: 042
     Dates: start: 20100216, end: 20100216
  7. SCOPOLAMINE [Concomitant]
     Route: 061
  8. DIPROSPAN [Concomitant]
     Route: 065
  9. VERSAL [Concomitant]

REACTIONS (2)
  - DEVICE BREAKAGE [None]
  - POST PROCEDURAL HAEMORRHAGE [None]
